FAERS Safety Report 7925153-X (Version None)
Quarter: 2011Q4

REPORT INFORMATION
  Report Type: 
  Country: None (occurrence: None)
  Receive Date: 20111118
  Receipt Date: 20110401
  Transmission Date: 20120403
  Serious: No
  Sender: FDA-Public Use
  Company Number: US-AMGEN-USASP2011017547

PATIENT
  Age: 42 Year
  Sex: Female

DRUGS (1)
  1. ENBREL [Suspect]
     Indication: ANKYLOSING SPONDYLITIS
     Dosage: 50 MG, QWK
     Dates: start: 20110324

REACTIONS (6)
  - ANKYLOSING SPONDYLITIS [None]
  - PAIN [None]
  - HYPOAESTHESIA [None]
  - OEDEMA PERIPHERAL [None]
  - TENDERNESS [None]
  - IRRITABILITY [None]
